FAERS Safety Report 5340515-5 (Version None)
Quarter: 2007Q2

REPORT INFORMATION
  Report Type: 
  Country: None (occurrence: None)
  Receive Date: 20070531
  Receipt Date: 20070521
  Transmission Date: 20071010
  Serious: Yes (Death)
  Sender: FDA-Public Use
  Company Number: JP-PFIZER INC-2006155671

PATIENT
  Sex: Male

DRUGS (1)
  1. ESTRACYT [Suspect]
     Dosage: DAILY DOSE:156.7MG
     Route: 048
     Dates: start: 20061212, end: 20061212

REACTIONS (1)
  - SUDDEN DEATH [None]
